FAERS Safety Report 18735032 (Version 1)
Quarter: 2021Q1

REPORT INFORMATION
  Report Type: Spontaneous
  Country: US (occurrence: US)
  Receive Date: 20210112
  Receipt Date: 20210112
  Transmission Date: 20210419
  Serious: Yes (Hospitalization)
  Sender: FDA-Public Use
  Company Number: None

PATIENT
  Age: 62 Year
  Sex: Male

DRUGS (1)
  1. IMATINIB MES 400MG TAB [Suspect]
     Active Substance: IMATINIB MESYLATE
     Indication: ACUTE LYMPHOCYTIC LEUKAEMIA
     Dosage: ?          OTHER ROUTE:PO?14D ON?14D OFF??
     Dates: start: 20200723

REACTIONS (1)
  - Stem cell transplant [None]

NARRATIVE: CASE EVENT DATE: 20201119
